FAERS Safety Report 23907362 (Version 3)
Quarter: 2024Q4

REPORT INFORMATION
  Report Type: Spontaneous
  Country: JP (occurrence: JP)
  Receive Date: 20240528
  Receipt Date: 20241101
  Transmission Date: 20250115
  Serious: Yes (Other)
  Sender: ALEXION PHARMACEUTICALS
  Company Number: 2024A121035

PATIENT
  Age: 82 Year
  Weight: 61 kg

DRUGS (41)
  1. ONDEXXYA [Suspect]
     Active Substance: ANDEXANET ALFA
     Dosage: ADMINISTRATION OF 400 MG AT A RATE OF 30 MG/MIN FOLLOWED BY INTRAVENOUS ADMINISTRATION OF 480 MG AT
  2. ONDEXXYA [Suspect]
     Active Substance: ANDEXANET ALFA
     Dosage: ADMINISTRATION OF 400 MG AT A RATE OF 30 MG/MIN FOLLOWED BY INTRAVENOUS ADMINISTRATION OF 480 MG AT
  3. ONDEXXYA [Suspect]
     Active Substance: ANDEXANET ALFA
     Dosage: ADMINISTRATION OF 400 MG AT A RATE OF 30 MG/MIN FOLLOWED BY INTRAVENOUS ADMINISTRATION OF 480 MG AT
  4. ONDEXXYA [Suspect]
     Active Substance: ANDEXANET ALFA
     Dosage: ADMINISTRATION OF 400 MG AT A RATE OF 30 MG/MIN FOLLOWED BY INTRAVENOUS ADMINISTRATION OF 480 MG AT
  5. UNSPECIFIED INGREDIENT [Concomitant]
     Active Substance: UNSPECIFIED INGREDIENT
     Dosage: DOSE UNKNOWN
  6. UNSPECIFIED INGREDIENT [Concomitant]
     Active Substance: UNSPECIFIED INGREDIENT
     Dosage: DOSE UNKNOWN
     Route: 065
  7. XARELTO [Concomitant]
     Active Substance: RIVAROXABAN
     Dosage: 10 MILLIGRAM, UNK, FREQUENCY: UNK
  8. XARELTO [Concomitant]
     Active Substance: RIVAROXABAN
     Dosage: 10 MILLIGRAM, UNK, FREQUENCY: UNK
  9. XARELTO [Concomitant]
     Active Substance: RIVAROXABAN
     Route: 065
  10. XARELTO [Concomitant]
     Active Substance: RIVAROXABAN
  11. XARELTO [Concomitant]
     Active Substance: RIVAROXABAN
     Route: 065
  12. XARELTO [Concomitant]
     Active Substance: RIVAROXABAN
  13. EDOXABAN TOSYLATE [Concomitant]
     Active Substance: EDOXABAN TOSYLATE
     Dosage: 15 MILLIGRAM, UNK, FREQUENCY: UNK
  14. EDOXABAN TOSYLATE [Concomitant]
     Active Substance: EDOXABAN TOSYLATE
     Dosage: 15 MILLIGRAM
  15. EDOXABAN TOSYLATE [Concomitant]
     Active Substance: EDOXABAN TOSYLATE
     Dosage: 15 MILLIGRAM
  16. TRANEXAMIC ACID [Concomitant]
     Active Substance: TRANEXAMIC ACID
     Dosage: 1000 MILLIGRAM
  17. TRANEXAMIC ACID [Concomitant]
     Active Substance: TRANEXAMIC ACID
     Dosage: 1000 MILLIGRAM
  18. TRANEXAMIC ACID [Concomitant]
     Active Substance: TRANEXAMIC ACID
     Dosage: 1000 MILLIGRAM
  19. TRANEXAMIC ACID [Concomitant]
     Active Substance: TRANEXAMIC ACID
     Dosage: 1000 MILLIGRAM
  20. CARBAZOCHROME SODIUM SULFONATE [Concomitant]
     Active Substance: CARBAZOCHROME SODIUM SULFONATE
     Dosage: 50 MILLIGRAM
  21. CARBAZOCHROME SODIUM SULFONATE [Concomitant]
     Active Substance: CARBAZOCHROME SODIUM SULFONATE
     Dosage: 50 MILLIGRAM
  22. CARBAZOCHROME SODIUM SULFONATE [Concomitant]
     Active Substance: CARBAZOCHROME SODIUM SULFONATE
     Dosage: 50 MILLIGRAM
  23. CARBAZOCHROME SODIUM SULFONATE [Concomitant]
     Active Substance: CARBAZOCHROME SODIUM SULFONATE
     Dosage: 50 MILLIGRAM
  24. NICARDIPINE HYDROCHLORIDE [Concomitant]
     Active Substance: NICARDIPINE HYDROCHLORIDE
     Dosage: DOSE UNKNOWN, CONTINUOUS DOSE
  25. NICARDIPINE HYDROCHLORIDE [Concomitant]
     Active Substance: NICARDIPINE HYDROCHLORIDE
     Dosage: DOSE UNKNOWN, CONTINUOUS DOSE
  26. NICARDIPINE HYDROCHLORIDE [Concomitant]
     Active Substance: NICARDIPINE HYDROCHLORIDE
     Dosage: DOSE UNKNOWN, CONTINUOUS DOSE
  27. NICARDIPINE HYDROCHLORIDE [Concomitant]
     Active Substance: NICARDIPINE HYDROCHLORIDE
     Dosage: DOSE UNKNOWN, CONTINUOUS DOSE
  28. TENELIGLIPTIN [Concomitant]
     Active Substance: TENELIGLIPTIN
     Dosage: 20 MILLIGRAM
  29. TENELIGLIPTIN [Concomitant]
     Active Substance: TENELIGLIPTIN
     Dosage: 20 MILLIGRAM
  30. LORAZEPAM [Concomitant]
     Active Substance: LORAZEPAM
     Dosage: 1 MILLIGRAM
  31. LORAZEPAM [Concomitant]
     Active Substance: LORAZEPAM
     Dosage: 1 MILLIGRAM
  32. DILTIAZEM HYDROCHLORIDE [Concomitant]
     Active Substance: DILTIAZEM HYDROCHLORIDE
     Dosage: 100 MILLIGRAM
  33. DILTIAZEM HYDROCHLORIDE [Concomitant]
     Active Substance: DILTIAZEM HYDROCHLORIDE
     Dosage: 100 MILLIGRAM
  34. INDAPAMIDE [Concomitant]
     Active Substance: INDAPAMIDE
     Dosage: 1 MILLIGRAM
  35. INDAPAMIDE [Concomitant]
     Active Substance: INDAPAMIDE
     Dosage: 1 MILLIGRAM
  36. LANSOPRAZOLE [Concomitant]
     Active Substance: LANSOPRAZOLE
     Dosage: 15 MILLIGRAM
  37. LANSOPRAZOLE [Concomitant]
     Active Substance: LANSOPRAZOLE
     Dosage: 15 MILLIGRAM
  38. LUSEOGLIFLOZIN [Concomitant]
     Active Substance: LUSEOGLIFLOZIN
     Dosage: 2.5 MILLIGRAM
  39. LUSEOGLIFLOZIN [Concomitant]
     Active Substance: LUSEOGLIFLOZIN
     Dosage: 2.5 MILLIGRAM
  40. ROSUVASTATIN [Concomitant]
     Active Substance: ROSUVASTATIN
     Dosage: 2.5 MILLIGRAM
  41. ROSUVASTATIN [Concomitant]
     Active Substance: ROSUVASTATIN
     Dosage: 2.5 MILLIGRAM

REACTIONS (1)
  - Cerebral infarction [Recovering/Resolving]
